FAERS Safety Report 19525422 (Version 1)
Quarter: 2021Q3

REPORT INFORMATION
  Report Type: Spontaneous
  Country: US (occurrence: US)
  Receive Date: 20210713
  Receipt Date: 20210713
  Transmission Date: 20211014
  Serious: No
  Sender: FDA-Public Use
  Company Number: None

PATIENT
  Age: 71 Year
  Sex: Female
  Weight: 58.5 kg

DRUGS (9)
  1. CLINDAMYCIN HCL 300 MG [Suspect]
     Active Substance: CLINDAMYCIN HYDROCHLORIDE
     Indication: TOOTH INFECTION
     Dates: start: 20210702, end: 20210712
  2. ZINC. [Concomitant]
     Active Substance: ZINC
  3. BORON [Concomitant]
     Active Substance: BORON
  4. MAGNESIUM [Concomitant]
     Active Substance: MAGNESIUM
  5. CALCIUM CITRATE [Concomitant]
     Active Substance: CALCIUM CITRATE
  6. EASTER?C [Concomitant]
  7. BEET ROOT POWDER [Concomitant]
  8. LEVXYOL [Concomitant]
  9. ESTRACE [Concomitant]
     Active Substance: ESTRADIOL

REACTIONS (1)
  - Rash [None]

NARRATIVE: CASE EVENT DATE: 20210712
